FAERS Safety Report 11199701 (Version 2)
Quarter: 2015Q2

REPORT INFORMATION
  Report Type: Spontaneous
  Country: FR (occurrence: FR)
  Receive Date: 20150618
  Receipt Date: 20150630
  Transmission Date: 20150821
  Serious: Yes (Hospitalization, Other)
  Sender: FDA-Public Use
  Company Number: FR-PFIZER INC-2015200575

PATIENT
  Age: 80 Year
  Sex: Male

DRUGS (6)
  1. PREDNISONE. [Suspect]
     Active Substance: PREDNISONE
     Dosage: 12 CYCLES
     Dates: start: 201204, end: 2013
  2. REVLIMID [Suspect]
     Active Substance: LENALIDOMIDE
     Indication: PLASMA CELL MYELOMA
     Dosage: 15 MG, 1X/DAY (21 DAYS ON 28 DAYS)
     Route: 048
     Dates: start: 20140610, end: 20141123
  3. VELCADE [Suspect]
     Active Substance: BORTEZOMIB
     Indication: PLASMA CELL MYELOMA
     Dosage: UNK, CYCLIC
     Route: 042
     Dates: start: 20140120, end: 20140323
  4. DEXAMETHASONE. [Suspect]
     Active Substance: DEXAMETHASONE
     Indication: PLASMA CELL MYELOMA
     Dosage: UNK, CYCLIC
     Route: 042
     Dates: start: 20140120, end: 20140323
  5. ALKERAN [Suspect]
     Active Substance: MELPHALAN
     Indication: PLASMA CELL MYELOMA
     Dosage: 12 CYCLES
     Route: 042
     Dates: start: 201204, end: 2013
  6. MEDROL [Suspect]
     Active Substance: METHYLPREDNISOLONE
     Indication: PLASMA CELL MYELOMA
     Dosage: 100 MG, 1X/WEEK
     Route: 048
     Dates: start: 20140610, end: 20141123

REACTIONS (3)
  - Systemic sclerosis [Not Recovered/Not Resolved]
  - Plasma cell myeloma [Unknown]
  - Condition aggravated [Unknown]

NARRATIVE: CASE EVENT DATE: 201408
